FAERS Safety Report 5179352-3 (Version None)
Quarter: 2006Q4

REPORT INFORMATION
  Report Type: 
  Country: None (occurrence: None)
  Receive Date: 20061211
  Receipt Date: 20061206
  Transmission Date: 20070319
  Serious: Yes (Other)
  Sender: FDA-Public Use
  Company Number: 2006SP003793

PATIENT
  Age: 52 Year
  Sex: Male

DRUGS (1)
  1. ALBUTEROL SULFATE [Suspect]
     Indication: DRUG USE FOR UNKNOWN INDICATION
     Dosage: 2 DF; INH
     Route: 055
     Dates: start: 20061004, end: 20061004

REACTIONS (2)
  - ANAPHYLACTIC REACTION [None]
  - PHARMACEUTICAL PRODUCT COMPLAINT [None]
